FAERS Safety Report 21855657 (Version 1)
Quarter: 2023Q1

REPORT INFORMATION
  Report Type: Report from Study
  Country: US (occurrence: US)
  Receive Date: 20230112
  Receipt Date: 20230112
  Transmission Date: 20230418
  Serious: No
  Sender: FDA-Public Use
  Company Number: US-ABBVIE-4223933

PATIENT
  Age: 48 Year
  Sex: Female

DRUGS (1)
  1. ORILISSA [Suspect]
     Active Substance: ELAGOLIX SODIUM
     Indication: Endometriosis
     Dosage: FREQUENCY TEXT: DAILY
     Route: 048
     Dates: start: 20221009

REACTIONS (7)
  - Vaginal haemorrhage [Not Recovered/Not Resolved]
  - Headache [Recovering/Resolving]
  - Night sweats [Recovering/Resolving]
  - Dysmenorrhoea [Recovering/Resolving]
  - Hypothyroidism [Not Recovered/Not Resolved]
  - Thyroid hormones decreased [Unknown]
  - Endometriosis [Unknown]

NARRATIVE: CASE EVENT DATE: 20221124
